FAERS Safety Report 8309516-9 (Version None)
Quarter: 2012Q2

REPORT INFORMATION
  Report Type: 
  Country: None (occurrence: None)
  Receive Date: 20120425
  Receipt Date: 20120420
  Transmission Date: 20120825
  Serious: No
  Sender: FDA-Public Use
  Company Number: US-PFIZER INC-2012098500

PATIENT
  Sex: Female
  Weight: 132 kg

DRUGS (3)
  1. EFFEXOR [Suspect]
     Dosage: UNK
     Dates: start: 19980101
  2. EFFEXOR [Suspect]
     Dosage: 150 MG, DAILY
     Dates: end: 20100601
  3. ATENOLOL [Concomitant]
     Indication: BLOOD PRESSURE ABNORMAL
     Dosage: UNK

REACTIONS (9)
  - EMOTIONAL DISORDER [None]
  - PAIN [None]
  - IRRITABILITY [None]
  - CONFUSIONAL STATE [None]
  - DRUG ADMINISTRATION ERROR [None]
  - ANXIETY [None]
  - DIZZINESS [None]
  - ANGER [None]
  - PERSONALITY CHANGE [None]
